FAERS Safety Report 4805968-7 (Version None)
Quarter: 2005Q4

REPORT INFORMATION
  Report Type: 
  Country: None (occurrence: None)
  Receive Date: 20051019
  Receipt Date: 20051019
  Transmission Date: 20060501
  Serious: No
  Sender: FDA-Public Use
  Company Number: None

PATIENT
  Age: 41 Year
  Sex: Female
  Weight: 62.5964 kg

DRUGS (6)
  1. GLEEVEC [Suspect]
     Indication: BREAST CANCER METASTATIC
     Dosage: 400 MG BID PO 10
     Route: 048
  2. TAXOL [Suspect]
     Indication: BREAST CANCER METASTATIC
     Dosage: 100 MG/M2 IV
     Route: 042
  3. LOVENOX [Concomitant]
  4. PREVACID [Concomitant]
  5. TYLENOL W/ CODEINE NO. 3 [Concomitant]
  6. BENXONATATE [Concomitant]

REACTIONS (2)
  - PERICARDIAL EFFUSION [None]
  - PLEURAL EFFUSION [None]
